FAERS Safety Report 21838375 (Version 3)
Quarter: 2023Q1

REPORT INFORMATION
  Report Type: Spontaneous
  Country: DE (occurrence: DE)
  Receive Date: 20230109
  Receipt Date: 20230206
  Transmission Date: 20230418
  Serious: Yes (Life-Threatening, Hospitalization, Other)
  Sender: FDA-Public Use
  Company Number: DE-FreseniusKabi-FK202211872

PATIENT
  Age: 65 Year
  Sex: Female
  Weight: 92 kg

DRUGS (18)
  1. CARBOPLATIN [Suspect]
     Active Substance: CARBOPLATIN
     Indication: Breast cancer female
     Dosage: 5AUC,EVERY 21 DAYS?ROA-20045000
     Route: 042
     Dates: end: 20221118
  2. CARBOPLATIN [Suspect]
     Active Substance: CARBOPLATIN
     Dosage: 5AUC,EVERY 21 DAYS
     Route: 042
  3. PACLITAXEL [Suspect]
     Active Substance: PACLITAXEL
     Indication: Breast cancer female
     Dosage: 80MG/MX2;?ROA-20045000
     Route: 042
     Dates: end: 20220915
  4. PACLITAXEL [Suspect]
     Active Substance: PACLITAXEL
     Dosage: 80MG/MX2;?ROA-20045000
     Route: 042
     Dates: end: 20221209
  5. PACLITAXEL [Suspect]
     Active Substance: PACLITAXEL
     Dosage: 80MG/MX2;?ROA-20045000
     Dates: end: 20221118
  6. PACLITAXEL [Suspect]
     Active Substance: PACLITAXEL
     Dosage: 80MG/MX2;?START DATE : 06-JUL-2022
     Route: 042
     Dates: end: 20220915
  7. PACLITAXEL [Suspect]
     Active Substance: PACLITAXEL
     Dosage: 80MG/MX2;
     Route: 042
     Dates: end: 20221216
  8. PERTUZUMAB [Suspect]
     Active Substance: PERTUZUMAB
     Indication: Breast cancer female
     Dosage: ROA-20045000
     Route: 042
     Dates: end: 20221118
  9. PERTUZUMAB [Suspect]
     Active Substance: PERTUZUMAB
     Dosage: ROA-20045000
     Route: 042
     Dates: end: 20220915
  10. PERTUZUMAB [Suspect]
     Active Substance: PERTUZUMAB
     Dosage: ROA-20045000
     Route: 042
     Dates: end: 20221209
  11. PERTUZUMAB [Suspect]
     Active Substance: PERTUZUMAB
     Dosage: ROA-20045000
     Route: 042
     Dates: start: 20220706
  12. ONTRUZANT [Suspect]
     Active Substance: TRASTUZUMAB-DTTB
     Indication: Breast cancer female
     Dosage: EVERY 21 DAYS
     Route: 042
     Dates: end: 20220915
  13. ONTRUZANT [Suspect]
     Active Substance: TRASTUZUMAB-DTTB
     Dosage: EVERY 21 DAYS
     Route: 042
     Dates: start: 20220706
  14. ONTRUZANT [Suspect]
     Active Substance: TRASTUZUMAB-DTTB
     Dosage: EVERY 21 DAYS
     Route: 042
     Dates: end: 20221209
  15. ONTRUZANT [Suspect]
     Active Substance: TRASTUZUMAB-DTTB
     Dosage: EVERY 21 DAYS
     Route: 042
     Dates: end: 20221118
  16. OLMESARTAN [Concomitant]
     Active Substance: OLMESARTAN
     Indication: Hypertension
     Dosage: ROA-20053000
     Route: 042
  17. OLMESARTAN [Concomitant]
     Active Substance: OLMESARTAN
     Route: 048
  18. OLMESARTAN [Concomitant]
     Active Substance: OLMESARTAN
     Route: 048

REACTIONS (12)
  - Acute myocardial infarction [Not Recovered/Not Resolved]
  - Acute kidney injury [Recovered/Resolved]
  - Stress cardiomyopathy [Recovered/Resolved]
  - Stress cardiomyopathy [None]
  - Mastectomy [None]
  - Device related infection [Not Recovered/Not Resolved]
  - Infection [Not Recovered/Not Resolved]
  - Staphylococcal bacteraemia [Not Recovered/Not Resolved]
  - Anaemia [Recovered/Resolved]
  - Anaemia [Recovered/Resolved]
  - Diarrhoea [Recovered/Resolved]
  - Pyrexia [None]

NARRATIVE: CASE EVENT DATE: 20220216
